FAERS Safety Report 15493582 (Version 1)
Quarter: 2018Q4

REPORT INFORMATION
  Report Type: Spontaneous
  Country: CO (occurrence: CO)
  Receive Date: 20181012
  Receipt Date: 20181012
  Transmission Date: 20190205
  Serious: Yes (Disabling)
  Sender: FDA-Public Use
  Company Number: None

PATIENT
  Age: 34 Year
  Sex: Female
  Weight: 63 kg

DRUGS (2)
  1. ORLISTAT. [Suspect]
     Active Substance: ORLISTAT
     Indication: WEIGHT CONTROL
     Dosage: ?          QUANTITY:3 CAPSULE(S);?
     Route: 048
     Dates: start: 20180815, end: 20180915
  2. LOSARTAN. [Concomitant]
     Active Substance: LOSARTAN

REACTIONS (2)
  - Rash generalised [None]
  - Contusion [None]

NARRATIVE: CASE EVENT DATE: 20180922
